FAERS Safety Report 7642101-0 (Version None)
Quarter: 2011Q3

REPORT INFORMATION
  Report Type: 
  Country: None (occurrence: None)
  Receive Date: 20110727
  Receipt Date: 20110727
  Transmission Date: 20111222
  Serious: Yes (Other)
  Sender: FDA-Public Use
  Company Number: None

PATIENT
  Sex: Female

DRUGS (1)
  1. VALTREX [Suspect]
     Indication: HERPES ZOSTER
     Dosage: 1GM Q 8 HRS PO
     Route: 048
     Dates: start: 20110408

REACTIONS (2)
  - UNEVALUABLE EVENT [None]
  - ALOPECIA [None]
